FAERS Safety Report 18152595 (Version 3)
Quarter: 2020Q4

REPORT INFORMATION
  Report Type: Spontaneous
  Country: US (occurrence: US)
  Receive Date: 20200814
  Receipt Date: 20201006
  Transmission Date: 20210113
  Serious: Yes (Hospitalization)
  Sender: FDA-Public Use
  Company Number: US-PFIZER INC-2020313461

PATIENT
  Age: 70 Year
  Sex: Female

DRUGS (1)
  1. XELJANZ [Suspect]
     Active Substance: TOFACITINIB CITRATE
     Dosage: 5 MG
     Dates: start: 20200420, end: 20200812

REACTIONS (4)
  - Nausea [Unknown]
  - Asthenia [Unknown]
  - Syncope [Unknown]
  - Vomiting [Unknown]

NARRATIVE: CASE EVENT DATE: 2020
